FAERS Safety Report 13648065 (Version 2)
Quarter: 2017Q3

REPORT INFORMATION
  Report Type: Spontaneous
  Country: DE (occurrence: DE)
  Receive Date: 20170613
  Receipt Date: 20170915
  Transmission Date: 20171127
  Serious: Yes (Hospitalization, Other)
  Sender: FDA-Public Use
  Company Number: DE-SA-2017SA100146

PATIENT
  Age: 33 Year
  Sex: Female
  Weight: 58 kg

DRUGS (2)
  1. LEMTRADA [Suspect]
     Active Substance: ALEMTUZUMAB
     Indication: RELAPSING-REMITTING MULTIPLE SCLEROSIS
     Route: 041
     Dates: end: 201409
  2. ACICLOVIR [Suspect]
     Active Substance: ACYCLOVIR
     Route: 065

REACTIONS (17)
  - Mean cell haemoglobin decreased [Unknown]
  - Mean cell haemoglobin concentration decreased [Not Recovered/Not Resolved]
  - Monocyte count increased [Unknown]
  - Gingival bleeding [Recovered/Resolved]
  - Menorrhagia [Recovered/Resolved]
  - Iron deficiency anaemia [Unknown]
  - Skin lesion [Recovered/Resolved]
  - Haemoglobin decreased [Unknown]
  - Rash [Unknown]
  - Mean cell volume decreased [Unknown]
  - Epistaxis [Recovered/Resolved]
  - Platelet count decreased [Not Recovered/Not Resolved]
  - Immune thrombocytopenic purpura [Recovering/Resolving]
  - Haematocrit decreased [Unknown]
  - Leukopenia [Unknown]
  - Eosinophil count increased [Unknown]
  - Petechiae [Recovered/Resolved]

NARRATIVE: CASE EVENT DATE: 20170510
